FAERS Safety Report 6526330-5 (Version None)
Quarter: 2010Q1

REPORT INFORMATION
  Report Type: 
  Country: None (occurrence: None)
  Receive Date: 20100105
  Receipt Date: 20091224
  Transmission Date: 20100710
  Serious: Yes (Hospitalization)
  Sender: FDA-Public Use
  Company Number: US-BIOGENIDEC-2009BI040444

PATIENT
  Age: 64 Year
  Sex: Male

DRUGS (1)
  1. TYSABRI [Suspect]
     Indication: MULTIPLE SCLEROSIS
     Route: 042
     Dates: start: 20080730

REACTIONS (6)
  - ANGER [None]
  - CONVULSION [None]
  - DEPRESSED MOOD [None]
  - HAEMORRHAGE URINARY TRACT [None]
  - MOOD ALTERED [None]
  - URINARY TRACT INFECTION [None]
